FAERS Safety Report 13514738 (Version 5)
Quarter: 2017Q3

REPORT INFORMATION
  Report Type: Report from Study
  Country: IE (occurrence: IE)
  Receive Date: 20170504
  Receipt Date: 20170816
  Transmission Date: 20171127
  Serious: Yes (Hospitalization)
  Sender: FDA-Public Use
  Company Number: PHFR2017IE003213

PATIENT
  Age: 36 Year
  Sex: Male

DRUGS (1)
  1. GILENYA [Suspect]
     Active Substance: FINGOLIMOD HYDROCHLORIDE
     Indication: RELAPSING-REMITTING MULTIPLE SCLEROSIS
     Dosage: 0.5 MG, UNK
     Route: 048
     Dates: start: 20170421

REACTIONS (2)
  - Chest pain [Recovered/Resolved]
  - Anxiety [Unknown]

NARRATIVE: CASE EVENT DATE: 20170421
